FAERS Safety Report 6385582-5 (Version None)
Quarter: 2009Q4

REPORT INFORMATION
  Report Type: 
  Country: None (occurrence: None)
  Receive Date: 20091002
  Receipt Date: 20090919
  Transmission Date: 20100525
  Serious: Yes (Other)
  Sender: FDA-Public Use
  Company Number: BE-PFIZER INC-2009271987

PATIENT
  Age: 71 Year

DRUGS (1)
  1. SUNITINIB MALATE [Suspect]
     Indication: GASTROINTESTINAL STROMAL TUMOUR
     Dosage: 50 MG, 1X/DAY, 4/2 SCHEDULE

REACTIONS (5)
  - ANAEMIA [None]
  - FATIGUE [None]
  - LEUKOPENIA [None]
  - PRESYNCOPE [None]
  - THROMBOCYTOPENIA [None]
